FAERS Safety Report 4399332-5 (Version None)
Quarter: 2004Q3

REPORT INFORMATION
  Report Type: 
  Country: None (occurrence: None)
  Receive Date: 20040712
  Receipt Date: 20040702
  Transmission Date: 20050211
  Serious: Yes (Hospitalization, Other)
  Sender: FDA-Public Use
  Company Number: HQ5726109JAN2001

PATIENT
  Age: 32 Year
  Sex: Female

DRUGS (3)
  1. NORGESTREL AND ETHINYL ESTRADIOL [Suspect]
     Indication: OVARIAN DISORDER
     Dosage: 1 TABLET 1X PER 1 DAY ORAL
     Route: 048
     Dates: start: 19950831, end: 19951001
  2. NORGESTREL AND ETHINYL ESTRADIOL [Suspect]
     Indication: OVARIAN DISORDER
     Dosage: 1 TABLET 1X PER 1 DAY ORAL
     Route: 048
     Dates: start: 19990706, end: 19990721
  3. PROGESTERONE [Concomitant]

REACTIONS (2)
  - HEPATITIS CHOLESTATIC [None]
  - OVARIAN HYPERSTIMULATION SYNDROME [None]
